FAERS Safety Report 5805899-X (Version None)
Quarter: 2008Q3

REPORT INFORMATION
  Report Type: 
  Country: None (occurrence: None)
  Receive Date: 20080710
  Receipt Date: 20080703
  Transmission Date: 20090109
  Serious: Yes (Other)
  Sender: FDA-Public Use
  Company Number: US-BAYER-200812516BCC

PATIENT
  Age: 70 Year
  Sex: Female
  Weight: 52 kg

DRUGS (6)
  1. ASPIRIN [Suspect]
     Indication: ISCHAEMIC HEART DISEASE PROPHYLAXIS
     Dosage: AS USED: 162 MG  UNIT DOSE: 81 MG
     Route: 048
     Dates: start: 20050101
  2. FERGON [Suspect]
     Indication: ANAEMIA
     Dosage: UNIT DOSE: 1 DF
     Route: 048
     Dates: start: 20050101
  3. ONE-A-DAY WOMEN'S VITAMINS [Suspect]
     Indication: VITAMIN SUPPLEMENTATION
     Dosage: TOTAL DAILY DOSE: 1 DF  UNIT DOSE: 1 DF
     Route: 048
     Dates: start: 20050101
  4. GENUINE BAYER APIRIN [Suspect]
     Indication: ISCHAEMIC HEART DISEASE PROPHYLAXIS
     Dosage: TOTAL DAILY DOSE: 325 MG  UNIT DOSE: 325 MG
     Route: 048
  5. TOPROL-XL [Concomitant]
  6. ZOMETA [Concomitant]

REACTIONS (6)
  - ANAEMIA [None]
  - AORTIC ANEURYSM [None]
  - FAECES DISCOLOURED [None]
  - PANCREATITIS [None]
  - VITAMIN B12 DEFICIENCY [None]
  - VITAMIN D DEFICIENCY [None]
